FAERS Safety Report 15812818 (Version 2)
Quarter: 2019Q1

REPORT INFORMATION
  Report Type: Report from Study
  Country: GB (occurrence: GB)
  Receive Date: 20190111
  Receipt Date: 20190131
  Transmission Date: 20190417
  Serious: Yes (Hospitalization)
  Sender: FDA-Public Use
  Company Number: GB-JNJFOC-20190110985

PATIENT
  Age: 45 Year
  Sex: Male

DRUGS (2)
  1. MERCAPTOPURINE. [Concomitant]
     Active Substance: MERCAPTOPURINE
     Route: 065
  2. STELARA [Suspect]
     Active Substance: USTEKINUMAB
     Indication: CROHN^S DISEASE
     Route: 058
     Dates: start: 20180329

REACTIONS (3)
  - Crohn^s disease [Unknown]
  - Sepsis [Unknown]
  - Drug ineffective [Unknown]

NARRATIVE: CASE EVENT DATE: 20181228
